FAERS Safety Report 9264982 (Version 1)
Quarter: 2013Q2

REPORT INFORMATION
  Report Type: Spontaneous
  Country: DE (occurrence: None)
  Receive Date: 20130429
  Receipt Date: 20130429
  Transmission Date: 20140414
  Serious: Yes (Hospitalization)
  Sender: FDA-Public Use
  Company Number: GER/GER/13/0029086

PATIENT
  Age: 48 Year
  Sex: Male

DRUGS (4)
  1. RAMIPRIL (RAMIPRIL) [Suspect]
     Indication: PRODUCT USED FOR UNKNOWN INDICATION
     Route: 048
     Dates: start: 20121208
  2. ZOLOFT (SERTRALINE HYDROCHLORIDE) [Suspect]
     Indication: PRODUCT USED FOR UNKNOWN INDICATION
     Route: 048
     Dates: start: 20121211, end: 20121212
  3. DIPIPERON (PIPAMPERONE HYDROCHLORIDE) [Concomitant]
  4. METFORMIN (METFORMIN HYDROCHLORIDE) [Concomitant]

REACTIONS (2)
  - Ejaculation disorder [None]
  - Male orgasmic disorder [None]
